FAERS Safety Report 26218632 (Version 1)
Quarter: 2025Q4

REPORT INFORMATION
  Report Type: Spontaneous
  Country: CA (occurrence: CA)
  Receive Date: 20251231
  Receipt Date: 20251231
  Transmission Date: 20260118
  Serious: Yes (Hospitalization)
  Sender: PURDUE
  Company Number: CA-PURDUE-USA-2025-0323465

PATIENT
  Age: 61 Year
  Sex: Female

DRUGS (3)
  1. DILAUDID [Suspect]
     Active Substance: HYDROMORPHONE HYDROCHLORIDE
     Indication: Product used for unknown indication
     Dosage: UNK
     Route: 048
  2. SKYRIZI [Suspect]
     Active Substance: RISANKIZUMAB-RZAA
     Indication: Crohn^s disease
     Dosage: 1 EVERY 4 WEEKS
     Route: 042
  3. SKYRIZI [Suspect]
     Active Substance: RISANKIZUMAB-RZAA
     Dosage: 600 MILLIGRAM, 1 EVERY 4 WEEKS
     Route: 042

REACTIONS (8)
  - Abdominal pain [Recovering/Resolving]
  - Ankylosing spondylitis [Recovering/Resolving]
  - Asthenia [Recovering/Resolving]
  - Crohn^s disease [Recovering/Resolving]
  - Illness [Recovering/Resolving]
  - Incorrect dose administered [Recovering/Resolving]
  - Rheumatic disorder [Recovering/Resolving]
  - Oropharyngeal pain [Recovering/Resolving]
